FAERS Safety Report 7865755-2 (Version None)
Quarter: 2011Q4

REPORT INFORMATION
  Report Type: 
  Country: None (occurrence: None)
  Receive Date: 20111028
  Receipt Date: 20110218
  Transmission Date: 20120403
  Serious: Yes (Other)
  Sender: FDA-Public Use
  Company Number: US-GLAXOSMITHKLINE-A0914436A

PATIENT
  Age: 54 Year
  Sex: Female

DRUGS (3)
  1. PRILOSEC [Concomitant]
  2. ADVAIR DISKUS 100/50 [Suspect]
     Indication: ASTHMA
     Dosage: 1PUFF TWICE PER DAY
     Route: 055
     Dates: start: 20091201
  3. DICYCLOMINE [Concomitant]

REACTIONS (1)
  - PNEUMONIA [None]
